FAERS Safety Report 9931315 (Version 1)
Quarter: 2014Q1

REPORT INFORMATION
  Report Type: Spontaneous
  Country: US (occurrence: US)
  Receive Date: 20140228
  Receipt Date: 20140228
  Transmission Date: 20141002
  Serious: Yes (Death)
  Sender: FDA-Public Use
  Company Number: US-BIOGENIDEC-2014BI018392

PATIENT
  Age: 46 Year
  Sex: Male

DRUGS (7)
  1. AVONEX [Suspect]
     Indication: MULTIPLE SCLEROSIS
     Route: 030
     Dates: start: 20080424, end: 20140129
  2. CYMBALTA [Concomitant]
  3. DIOVAN [Concomitant]
  4. GLIPIZIDE [Concomitant]
  5. HYDROCHLOROTHIAZIDE [Concomitant]
  6. IBUPROFEN [Concomitant]
  7. WARFARIN SODIUM [Concomitant]

REACTIONS (1)
  - Death [Fatal]
